FAERS Safety Report 8861179 (Version 1)
Quarter: 2012Q4

REPORT INFORMATION
  Report Type: Spontaneous
  Country: US (occurrence: None)
  Receive Date: 20121025
  Receipt Date: 20121025
  Transmission Date: 20130627
  Serious: Yes (Other)
  Sender: FDA-Public Use
  Company Number: None

PATIENT
  Age: 53 Year
  Sex: Female
  Weight: 42.9 kg

DRUGS (3)
  1. HERCEPTIN [Suspect]
     Dosage: Load 364mg  273 mg
     Dates: start: 20120702
  2. ABRAXANE [Suspect]
     Dates: end: 20120910
  3. LISINOPRIL [Suspect]
     Route: 048
     Dates: start: 20121012

REACTIONS (1)
  - Dyspnoea [None]
